FAERS Safety Report 9894681 (Version 1)
Quarter: 2014Q1

REPORT INFORMATION
  Report Type: Spontaneous
  Country: KR (occurrence: KR)
  Receive Date: 20140213
  Receipt Date: 20140213
  Transmission Date: 20141002
  Serious: Yes (Other)
  Sender: FDA-Public Use
  Company Number: PHHY2014KR016848

PATIENT
  Age: 54 Year
  Sex: Female

DRUGS (5)
  1. 5-FLUOROURACIL [Suspect]
     Indication: PANCREATIC CARCINOMA METASTATIC
     Dosage: 400 MG/M2, UNK
     Route: 040
  2. 5-FLUOROURACIL [Suspect]
     Dosage: 2400 MG/M2, AS CONTINUOUS INFUSION OVER 43 H.
     Route: 042
  3. 5-FLUOROURACIL [Suspect]
     Dosage: 1300 MG, UNK
  4. OXALIPLATIN [Concomitant]
     Indication: PANCREATIC CARCINOMA METASTATIC
     Dosage: 85 MG/M2, UNK
  5. LEUCOVORIN [Concomitant]
     Indication: PANCREATIC CARCINOMA METASTATIC
     Dosage: 200 MG/M2, UNK

REACTIONS (7)
  - Azotaemia [Recovered/Resolved]
  - Hypocapnia [Unknown]
  - Mental status changes [Recovered/Resolved]
  - Somnolence [Recovered/Resolved]
  - Hyperammonaemic encephalopathy [Recovered/Resolved]
  - Stupor [Recovered/Resolved]
  - Hyperammonaemia [Unknown]
